FAERS Safety Report 7673338-2 (Version None)
Quarter: 2011Q3

REPORT INFORMATION
  Report Type: 
  Country: None (occurrence: None)
  Receive Date: 20110810
  Receipt Date: 20110728
  Transmission Date: 20111222
  Serious: No
  Sender: FDA-Public Use
  Company Number: AU-JNJFOC-20110606405

PATIENT
  Sex: Male

DRUGS (9)
  1. STELARA [Suspect]
     Route: 058
     Dates: start: 20110316
  2. STELARA [Suspect]
     Route: 058
     Dates: start: 20100329
  3. COVERSYL PLUS [Concomitant]
  4. STELARA [Suspect]
     Indication: PSORIASIS
     Route: 058
     Dates: start: 20100816
  5. NORVASC [Concomitant]
  6. STELARA [Suspect]
     Route: 058
     Dates: start: 20101213
  7. STELARA [Suspect]
     Route: 058
     Dates: start: 20110314
  8. STELARA [Suspect]
     Route: 058
     Dates: start: 20110601
  9. STELARA [Suspect]
     Route: 058
     Dates: start: 20100430

REACTIONS (2)
  - THERAPEUTIC RESPONSE DECREASED [None]
  - PSORIASIS [None]
